FAERS Safety Report 7768245-0 (Version None)
Quarter: 2011Q3

REPORT INFORMATION
  Report Type: 
  Country: None (occurrence: None)
  Receive Date: 20110919
  Receipt Date: 20110906
  Transmission Date: 20111222
  Serious: Yes (Death)
  Sender: FDA-Public Use
  Company Number: JPI-P-005539

PATIENT
  Age: 54 Year
  Sex: Male

DRUGS (2)
  1. XYREM [Suspect]
     Dosage: 4.5 GM (2.25 GM, 2 IN 1 D), ORAL  9 GM (4.5 GM, 2 IN 1 D), ORAL
     Route: 048
     Dates: start: 20030505, end: 20081101
  2. XYREM [Suspect]
     Dosage: 4.5 GM (2.25 GM, 2 IN 1 D), ORAL  9 GM (4.5 GM, 2 IN 1 D), ORAL
     Route: 048
     Dates: start: 20021011

REACTIONS (1)
  - ANTIDEPRESSANT DRUG LEVEL INCREASED [None]
